FAERS Safety Report 15708261 (Version 4)
Quarter: 2020Q2

REPORT INFORMATION
  Report Type: Spontaneous
  Country: US (occurrence: US)
  Receive Date: 20181211
  Receipt Date: 20200603
  Transmission Date: 20200713
  Serious: Yes (Other)
  Sender: FDA-Public Use
  Company Number: US-PFIZER INC-2018504031

PATIENT
  Age: 62 Year
  Sex: Female
  Weight: 80.74 kg

DRUGS (13)
  1. LYRICA [Suspect]
     Active Substance: PREGABALIN
     Indication: DIABETIC NEUROPATHY
     Dosage: 75 MG, 2X/DAY
     Route: 048
  2. LYRICA [Suspect]
     Active Substance: PREGABALIN
     Dosage: 100 MG, 2X/DAY
     Dates: start: 201812
  3. LYRICA [Suspect]
     Active Substance: PREGABALIN
     Dosage: 100 MG, 2X/DAY (ONE IN MORNING ONE AT NIGHT)
  4. LYRICA [Suspect]
     Active Substance: PREGABALIN
     Dosage: 100 MG, 2X/DAY
  5. SIMVASTIN [Concomitant]
     Active Substance: SIMVASTATIN
     Dosage: 40 MG, 1X/DAY
     Dates: start: 2017
  6. LANTUS [Concomitant]
     Active Substance: INSULIN GLARGINE
     Dosage: UNK, DAILY, (56 UNITS AM/50 UNITS PM)
     Dates: start: 2009
  7. GLIPIZIDE. [Concomitant]
     Active Substance: GLIPIZIDE
     Dosage: 5 MG, 2X/DAY
     Dates: start: 2009
  8. OLMESARTAN MEDOXOMIL. [Concomitant]
     Active Substance: OLMESARTAN MEDOXOMIL
     Dosage: 40 MG, 1X/DAY
     Dates: start: 2009
  9. HYDROCHLOROTHIAZIDE. [Concomitant]
     Active Substance: HYDROCHLOROTHIAZIDE
     Dosage: 25 MG, 1X/DAY
     Dates: start: 2017
  10. MELOXICAM. [Concomitant]
     Active Substance: MELOXICAM
     Dosage: 15 MG, 1X/DAY
     Dates: start: 2017
  11. LYRICA [Suspect]
     Active Substance: PREGABALIN
     Indication: NEUROPATHY PERIPHERAL
     Dosage: 50 MG
  12. CITALOPRAM [Concomitant]
     Active Substance: CITALOPRAM HYDROBROMIDE
     Dosage: 40 MG, 1X/DAY
     Dates: start: 2017
  13. METFORMIN HCL [Concomitant]
     Active Substance: METFORMIN HYDROCHLORIDE
     Dosage: 100 MG, 2X/DAY
     Dates: start: 2009

REACTIONS (11)
  - Neuropathy peripheral [Unknown]
  - Peripheral swelling [Unknown]
  - Diarrhoea [Unknown]
  - Pain in extremity [Unknown]
  - Nausea [Unknown]
  - Skin disorder [Unknown]
  - Condition aggravated [Unknown]
  - Withdrawal syndrome [Unknown]
  - Pain [Unknown]
  - Therapeutic product effect incomplete [Recovered/Resolved]
  - Burning feet syndrome [Unknown]

NARRATIVE: CASE EVENT DATE: 201812
